FAERS Safety Report 4892108-1 (Version None)
Quarter: 2006Q1

REPORT INFORMATION
  Report Type: 
  Country: None (occurrence: None)
  Receive Date: 20060126
  Receipt Date: 20050812
  Transmission Date: 20060701
  Serious: Yes (Death, Hospitalization, Disabling, Other)
  Sender: FDA-Public Use
  Company Number: 2005PK01529

PATIENT
  Age: 23466 Day
  Sex: Male
  Weight: 89 kg

DRUGS (6)
  1. IRESSA [Suspect]
     Indication: GLIOBLASTOMA
     Route: 048
     Dates: start: 20050713
  2. SINEMET [Concomitant]
  3. SIFROL [Concomitant]
  4. FORTECORTIN [Concomitant]
  5. URBANYL [Concomitant]
  6. DEPAKENE [Concomitant]

REACTIONS (2)
  - CONDITION AGGRAVATED [None]
  - PARKINSON'S DISEASE [None]
